FAERS Safety Report 5230483-9 (Version None)
Quarter: 2007Q1

REPORT INFORMATION
  Report Type: 
  Country: None (occurrence: None)
  Receive Date: 20070206
  Receipt Date: 20070123
  Transmission Date: 20070707
  Serious: Yes (Other)
  Sender: FDA-Public Use
  Company Number: PHEH2006US13447

PATIENT
  Sex: Female

DRUGS (8)
  1. ZOMETA [Suspect]
     Indication: MULTIPLE MYELOMA
  2. DECADRON #1 [Concomitant]
  3. THALIDOMIDE [Concomitant]
  4. VELCADE [Concomitant]
  5. DARBEPOETIN ALFA [Concomitant]
  6. ARANESP [Concomitant]
  7. AREDIA [Suspect]
     Indication: MULTIPLE MYELOMA
     Dosage: 90 MG, UNK
     Dates: start: 19990101, end: 20020101
  8. WARFARIN SODIUM [Concomitant]
     Indication: CENTRAL VENOUS CATHETERISATION

REACTIONS (19)
  - AZOTAEMIA [None]
  - BLOOD CREATININE INCREASED [None]
  - BLOOD UREA INCREASED [None]
  - BONE DISORDER [None]
  - COORDINATION ABNORMAL [None]
  - DIZZINESS [None]
  - GAIT DISTURBANCE [None]
  - HYPOAESTHESIA [None]
  - HYPOTONIA [None]
  - KYPHOSCOLIOSIS [None]
  - MULTIPLE MYELOMA [None]
  - NEUROLOGICAL SYMPTOM [None]
  - ORAL INTAKE REDUCED [None]
  - OSTEONECROSIS [None]
  - PAIN IN JAW [None]
  - TOOTH DISORDER [None]
  - TOOTH EXTRACTION [None]
  - WALKING AID USER [None]
  - WEIGHT DECREASED [None]
